FAERS Safety Report 10159297 (Version 2)
Quarter: 2014Q2

REPORT INFORMATION
  Report Type: Spontaneous
  Country: US (occurrence: US)
  Receive Date: 20140508
  Receipt Date: 20140516
  Transmission Date: 20141212
  Serious: Yes (Other)
  Sender: FDA-Public Use
  Company Number: US-JNJFOC-20140503030

PATIENT
  Sex: Female

DRUGS (3)
  1. XARELTO [Suspect]
     Indication: SINUS ARRHYTHMIA
     Route: 048
     Dates: start: 20130401
  2. XARELTO [Suspect]
     Indication: CEREBROVASCULAR ACCIDENT PROPHYLAXIS
     Route: 048
     Dates: start: 20130401
  3. XARELTO [Suspect]
     Indication: ATRIAL FIBRILLATION
     Route: 048
     Dates: start: 20130401

REACTIONS (3)
  - Post procedural haematoma [Recovered/Resolved]
  - Pharyngeal haemorrhage [Recovered/Resolved]
  - Mouth haemorrhage [Recovered/Resolved]
